FAERS Safety Report 8297474-5 (Version None)
Quarter: 2012Q2

REPORT INFORMATION
  Report Type: 
  Country: None (occurrence: None)
  Receive Date: 20120419
  Receipt Date: 20120409
  Transmission Date: 20120825
  Serious: Yes (Hospitalization)
  Sender: FDA-Public Use
  Company Number: PHHY2012TR012039

PATIENT
  Sex: Female

DRUGS (2)
  1. GLEEVEC [Suspect]
     Indication: CHRONIC MYELOID LEUKAEMIA
     Dosage: 400 MG, ONCE DAILY
     Route: 048
     Dates: start: 20050101
  2. ANTIBIOTICS [Suspect]
     Dosage: UNK UKN, UNK

REACTIONS (7)
  - EAR DISCOMFORT [None]
  - VOMITING [None]
  - NAUSEA [None]
  - INFLUENZA [None]
  - DRUG DOSE OMISSION [None]
  - NASAL DISCOMFORT [None]
  - OROPHARYNGEAL DISCOMFORT [None]
